FAERS Safety Report 5556041-4 (Version None)
Quarter: 2007Q4

REPORT INFORMATION
  Report Type: 
  Country: None (occurrence: None)
  Receive Date: 20071213
  Receipt Date: 20071207
  Transmission Date: 20080405
  Serious: Yes (Other)
  Sender: FDA-Public Use
  Company Number: US-GILEAD-2007-0014515

PATIENT
  Sex: Female
  Weight: 94.432 kg

DRUGS (10)
  1. LETAIRIS [Suspect]
     Indication: PULMONARY HYPERTENSION
     Route: 048
     Dates: start: 20071101
  2. QVAR 40 [Concomitant]
     Indication: ASTHMA
     Route: 055
  3. ALBUTEROL [Concomitant]
     Indication: CHRONIC OBSTRUCTIVE PULMONARY DISEASE
     Route: 055
  4. GABAPENTIN [Concomitant]
     Indication: FIBROMYALGIA
     Route: 048
  5. TYLENOL (CAPLET) [Concomitant]
     Indication: PAIN
  6. REVATIO [Concomitant]
     Indication: PULMONARY HYPERTENSION
     Route: 048
  7. WARFARIN SODIUM [Concomitant]
     Indication: ANTICOAGULANT THERAPY
     Route: 048
  8. CELEBREX [Concomitant]
     Indication: ARTHRALGIA
     Route: 048
  9. LASIX [Concomitant]
     Indication: PULMONARY HYPERTENSION
     Route: 048
  10. FAMOTIDINE [Concomitant]
     Indication: PEPTIC ULCER
     Route: 048

REACTIONS (4)
  - HEADACHE [None]
  - NASAL CONGESTION [None]
  - NAUSEA [None]
  - OEDEMA PERIPHERAL [None]
